FAERS Safety Report 5382228-X (Version None)
Quarter: 2007Q3

REPORT INFORMATION
  Report Type: 
  Country: None (occurrence: None)
  Receive Date: 20070709
  Receipt Date: 20070628
  Transmission Date: 20080115
  Serious: Yes (Hospitalization)
  Sender: FDA-Public Use
  Company Number: JP-JNJFOC-20070603591

PATIENT
  Sex: Female

DRUGS (19)
  1. RISPERDAL [Suspect]
     Route: 048
  2. RISPERDAL [Suspect]
     Route: 048
  3. RISPERDAL [Suspect]
     Route: 048
  4. RISPERDAL [Suspect]
     Route: 048
  5. RISPERDAL [Suspect]
     Route: 048
  6. RISPERDAL [Suspect]
     Route: 048
  7. RISPERDAL [Suspect]
     Route: 048
  8. RISPERDAL [Suspect]
     Route: 048
  9. RISPERDAL [Suspect]
     Route: 048
  10. RISPERDAL [Suspect]
     Route: 048
  11. RISPERDAL [Suspect]
     Indication: SCHIZOPHRENIA
     Route: 048
  12. RISPERDAL [Suspect]
     Route: 048
  13. RISPERDAL [Suspect]
     Route: 048
  14. LORAZEPAM [Concomitant]
     Route: 048
  15. LORAZEPAM [Concomitant]
     Indication: SCHIZOPHRENIA
     Route: 048
  16. ZOPICLONE [Concomitant]
     Route: 048
  17. ZOPICLONE [Concomitant]
     Indication: SCHIZOPHRENIA
     Route: 048
  18. BIPERIDEN HYDROCHLORIDE TAB [Concomitant]
     Route: 048
  19. BIPERIDEN HYDROCHLORIDE TAB [Concomitant]
     Indication: AKATHISIA
     Route: 048

REACTIONS (2)
  - AKATHISIA [None]
  - OBSESSIVE-COMPULSIVE DISORDER [None]
